FAERS Safety Report 24857435 (Version 2)
Quarter: 2025Q1

REPORT INFORMATION
  Report Type: Spontaneous
  Country: ES (occurrence: ES)
  Receive Date: 20250117
  Receipt Date: 20250219
  Transmission Date: 20250408
  Serious: Yes (Other)
  Sender: NOVARTIS
  Company Number: ES-002147023-NVSC2025ES007269

PATIENT
  Age: 46 Year
  Sex: Female

DRUGS (3)
  1. CARBAMAZEPINE [Suspect]
     Active Substance: CARBAMAZEPINE
     Indication: Neuromyotonia
     Dosage: 200 MG, Q12H
     Route: 065
  2. CARBAMAZEPINE [Suspect]
     Active Substance: CARBAMAZEPINE
     Route: 065
  3. GABAPENTIN [Concomitant]
     Active Substance: GABAPENTIN
     Indication: Neuromyotonia
     Dosage: 100 MG, Q12H
     Route: 065

REACTIONS (3)
  - Erythema multiforme [Unknown]
  - Toxic skin eruption [Unknown]
  - Off label use [Unknown]
